FAERS Safety Report 13829151 (Version 1)
Quarter: 2017Q3

REPORT INFORMATION
  Report Type: Spontaneous
  Country: US (occurrence: US)
  Receive Date: 20170803
  Receipt Date: 20170803
  Transmission Date: 20171127
  Serious: Yes (Hospitalization)
  Sender: FDA-Public Use
  Company Number: US-ASTELLAS-2017US025482

PATIENT
  Sex: Male

DRUGS (1)
  1. XTANDI [Suspect]
     Active Substance: ENZALUTAMIDE
     Indication: HORMONE-REFRACTORY PROSTATE CANCER
     Route: 048
     Dates: start: 20170405

REACTIONS (9)
  - Nausea [Unknown]
  - Prostatic specific antigen increased [Unknown]
  - Myalgia [Unknown]
  - Headache [Unknown]
  - Diabetes mellitus [Unknown]
  - Arthralgia [Unknown]
  - Hot flush [Unknown]
  - Dysgeusia [Unknown]
  - Malaise [Unknown]
